FAERS Safety Report 8919144 (Version 1)
Quarter: 2012Q4

REPORT INFORMATION
  Report Type: 
  Country: US (occurrence: US)
  Receive Date: 20121121
  Receipt Date: 20121121
  Transmission Date: 20130627
  Serious: Yes (Hospitalization, Other)
  Sender: FDA-Public Use
  Company Number: US-SANOFI-AVENTIS-2012SA082794

PATIENT
  Age: 63 Year
  Sex: Female
  Weight: 106 kg

DRUGS (7)
  1. LOVENOX [Suspect]
     Route: 065
     Dates: start: 2012
  2. LYRICA [Suspect]
     Indication: NEUROPATHY
     Route: 065
     Dates: start: 201203, end: 201204
  3. AMITRIPTYLINE [Suspect]
     Indication: SLEEP DISORDER
     Route: 065
     Dates: start: 2012
  4. LEVAQUIN [Suspect]
     Route: 065
     Dates: start: 2012, end: 2012
  5. PROCRIT [Suspect]
     Route: 065
  6. ANTIBIOTICS [Suspect]
     Route: 065
     Dates: start: 2012
  7. METFORMIN [Concomitant]
     Indication: DIABETES

REACTIONS (19)
  - Lung infection [Unknown]
  - Kidney infection [Unknown]
  - Dehydration [Unknown]
  - Cerebrovascular accident [Unknown]
  - Heart rate increased [Unknown]
  - Atrial fibrillation [Unknown]
  - Iron deficiency [Unknown]
  - Dyspnoea [Unknown]
  - Syncope [Unknown]
  - Arthropathy [Unknown]
  - Amnesia [Unknown]
  - Infection [Unknown]
  - Pneumonia aspiration [Unknown]
  - Muscle atrophy [Unknown]
  - Blood glucose decreased [Unknown]
  - Somnolence [Unknown]
  - Dizziness [Unknown]
  - Injection site haemorrhage [Unknown]
  - Injection site mass [Unknown]
